FAERS Safety Report 20658281 (Version 1)
Quarter: 2022Q1

REPORT INFORMATION
  Report Type: Spontaneous
  Country: BR (occurrence: BR)
  Receive Date: 20220331
  Receipt Date: 20220331
  Transmission Date: 20220423
  Serious: Yes (Hospitalization, Other)
  Sender: FDA-Public Use
  Company Number: BR-LUPIN PHARMACEUTICALS INC.-2022-04643

PATIENT
  Age: 51 Year
  Sex: Male

DRUGS (1)
  1. MORPHINE [Suspect]
     Active Substance: MORPHINE
     Indication: Product used for unknown indication
     Dosage: 10 MG, SELF-INJECTION OF 3 CRUSHED MORPHINE TABLETS
     Route: 065

REACTIONS (8)
  - Peripheral ischaemia [Unknown]
  - Drug abuse [Unknown]
  - Rhabdomyolysis [Unknown]
  - Compartment syndrome [Unknown]
  - Renal failure [Unknown]
  - Necrosis [Unknown]
  - Amputation [Unknown]
  - Incorrect route of product administration [Unknown]
